FAERS Safety Report 17326303 (Version 1)
Quarter: 2020Q1

REPORT INFORMATION
  Report Type: Spontaneous
  Country: GB (occurrence: GB)
  Receive Date: 20200127
  Receipt Date: 20200127
  Transmission Date: 20200409
  Serious: Yes (Other)
  Sender: FDA-Public Use
  Company Number: GB-MYLANLABS-2020M1007962

PATIENT
  Age: 23 Year
  Sex: Male
  Weight: 84 kg

DRUGS (1)
  1. CITALOPRAM [Suspect]
     Active Substance: CITALOPRAM HYDROBROMIDE
     Indication: DEPRESSION
     Dosage: 30 MILLIGRAM
     Route: 048
     Dates: start: 20140306, end: 20140406

REACTIONS (7)
  - Orgasmic sensation decreased [Unknown]
  - Sensory disturbance [Unknown]
  - Micturition disorder [Unknown]
  - Male sexual dysfunction [Not Recovered/Not Resolved]
  - Erectile dysfunction [Unknown]
  - Libido decreased [Unknown]
  - Anorgasmia [Unknown]

NARRATIVE: CASE EVENT DATE: 20140311
